FAERS Safety Report 26050714 (Version 1)
Quarter: 2025Q4

REPORT INFORMATION
  Report Type: Spontaneous
  Country: US (occurrence: US)
  Receive Date: 20251116
  Receipt Date: 20251116
  Transmission Date: 20260117
  Serious: No
  Sender: SANDOZ
  Company Number: US-SANDOZ-SDZ2025US084749

PATIENT
  Sex: Male

DRUGS (1)
  1. ALBUTEROL SULFATE [Suspect]
     Active Substance: ALBUTEROL SULFATE
     Indication: Product used for unknown indication
     Dosage: 90 MCG, AEROSOL FOR ORAL INHALATION
     Route: 048

REACTIONS (3)
  - Incorrect dose administered [Unknown]
  - Poor quality device used [Unknown]
  - Device delivery system issue [Unknown]
